FAERS Safety Report 5296000-2 (Version None)
Quarter: 2007Q2

REPORT INFORMATION
  Report Type: 
  Country: None (occurrence: None)
  Receive Date: 20070406
  Receipt Date: 20070322
  Transmission Date: 20071010
  Serious: Yes (Other)
  Sender: FDA-Public Use
  Company Number: CHNY2007JP01027

PATIENT
  Age: 57 Year
  Sex: Male
  Weight: 60 kg

DRUGS (8)
  1. NICOTINE [Suspect]
     Indication: NICOTINE DEPENDENCE
     Dosage: SEE IMAGE
     Route: 062
     Dates: start: 20050429, end: 20050512
  2. NICOTINE [Suspect]
     Indication: NICOTINE DEPENDENCE
     Dosage: SEE IMAGE
     Route: 062
     Dates: start: 20050513, end: 20050526
  3. NICOTINE [Suspect]
     Indication: NICOTINE DEPENDENCE
     Dosage: SEE IMAGE
     Route: 062
     Dates: start: 20050527, end: 20050609
  4. NICOTINE [Suspect]
     Indication: NICOTINE DEPENDENCE
     Dosage: SEE IMAGE
     Route: 062
     Dates: start: 20050628, end: 20050711
  5. NICOTINE [Suspect]
     Indication: NICOTINE DEPENDENCE
     Dosage: SEE IMAGE
     Route: 062
     Dates: start: 20050712, end: 20050725
  6. IMIGRAN/NOR/ (SUMATRIPTAN SUCCINATE) [Concomitant]
  7. LOXONIN (LOXOPROFEN SODIUM) [Concomitant]
  8. ALPRAZOLAM [Concomitant]

REACTIONS (9)
  - APATHY [None]
  - DEPRESSION [None]
  - DEPRESSIVE SYMPTOM [None]
  - DRUG WITHDRAWAL SYNDROME [None]
  - FEELING GUILTY [None]
  - HEADACHE [None]
  - MIDDLE INSOMNIA [None]
  - MOOD ALTERED [None]
  - THINKING ABNORMAL [None]
